FAERS Safety Report 12202447 (Version 1)
Quarter: 2016Q1

REPORT INFORMATION
  Report Type: Spontaneous
  Country: US (occurrence: US)
  Receive Date: 20160322
  Receipt Date: 20160322
  Transmission Date: 20160526
  Serious: Yes (Other)
  Sender: FDA-Public Use
  Company Number: US-BAYER-2016-052906

PATIENT
  Age: 61 Year
  Sex: Male
  Weight: 108.84 kg

DRUGS (9)
  1. SOTALOL. [Concomitant]
     Active Substance: SOTALOL
     Route: 048
  2. XARELTO [Suspect]
     Active Substance: RIVAROXABAN
     Indication: CEREBROVASCULAR ACCIDENT PROPHYLAXIS
  3. PARACETAMOL [Concomitant]
     Active Substance: ACETAMINOPHEN
  4. LISINOPRIL. [Concomitant]
     Active Substance: LISINOPRIL
     Dosage: 25 MG, BID
     Dates: start: 20150517
  5. XARELTO [Suspect]
     Active Substance: RIVAROXABAN
     Indication: ATRIAL FIBRILLATION
     Dosage: 20 MG, QD
     Route: 048
     Dates: start: 201506
  6. ALEVE [Suspect]
     Active Substance: NAPROXEN SODIUM
     Indication: PRODUCT USED FOR UNKNOWN INDICATION
     Route: 048
  7. XARELTO [Suspect]
     Active Substance: RIVAROXABAN
     Indication: HYPERTENSION
  8. AMLODIPINE [Concomitant]
     Active Substance: AMLODIPINE BESYLATE
     Indication: HYPERTENSION
     Dosage: 5 MG, BID
     Route: 065
     Dates: start: 20150517
  9. ACETAMINOPHEN. [Concomitant]
     Active Substance: ACETAMINOPHEN

REACTIONS (4)
  - Feeling abnormal [None]
  - Dyspnoea [None]
  - Atrial fibrillation [Recovered/Resolved]
  - Heart rate decreased [None]

NARRATIVE: CASE EVENT DATE: 201509
